FAERS Safety Report 5197789-3 (Version None)
Quarter: 2006Q4

REPORT INFORMATION
  Report Type: 
  Country: None (occurrence: None)
  Receive Date: 20061228
  Receipt Date: 20061215
  Transmission Date: 20070319
  Serious: Yes (Other)
  Sender: FDA-Public Use
  Company Number: 15371

PATIENT
  Age: 36 Year
  Sex: 0
  Weight: 82 kg

DRUGS (1)
  1. EPIRUBICIN [Suspect]
     Indication: BREAST CANCER
     Dates: start: 20060719, end: 20060830

REACTIONS (3)
  - INJECTION SITE PAIN [None]
  - MALAISE [None]
  - PAIN IN EXTREMITY [None]
